FAERS Safety Report 10046630 (Version 1)
Quarter: 2014Q1

REPORT INFORMATION
  Report Type: Spontaneous
  Country: BE (occurrence: BE)
  Receive Date: 20140331
  Receipt Date: 20140331
  Transmission Date: 20141002
  Serious: Yes (Other)
  Sender: FDA-Public Use
  Company Number: BE-AMGEN-BELSP2014022499

PATIENT
  Age: 65 Year
  Sex: Female

DRUGS (2)
  1. ENBREL [Suspect]
     Indication: PSORIASIS
     Dosage: 50 MG, UNK
     Route: 065
     Dates: start: 20131101
  2. MAGNESIUM [Concomitant]
     Dosage: UNK

REACTIONS (5)
  - Phlebitis [Recovering/Resolving]
  - Feeling hot [Recovering/Resolving]
  - Skin discolouration [Unknown]
  - Macule [Unknown]
  - Rash [Unknown]
